FAERS Safety Report 7491986-X (Version None)
Quarter: 2011Q2

REPORT INFORMATION
  Report Type: 
  Country: None (occurrence: None)
  Receive Date: 20110519
  Receipt Date: 20110510
  Transmission Date: 20111010
  Serious: Yes (Hospitalization, Other)
  Sender: FDA-Public Use
  Company Number: US-ASTRAZENECA-2011SE20803

PATIENT
  Age: 58 Year
  Sex: Female

DRUGS (1)
  1. NEXIUM [Suspect]
     Route: 048

REACTIONS (8)
  - ABDOMINAL DISCOMFORT [None]
  - ROAD TRAFFIC ACCIDENT [None]
  - PAIN MANAGEMENT [None]
  - DRUG DOSE OMISSION [None]
  - INTERNAL FIXATION OF SPINE [None]
  - MALAISE [None]
  - NAUSEA [None]
  - GASTROOESOPHAGEAL REFLUX DISEASE [None]
